FAERS Safety Report 7525949-2 (Version None)
Quarter: 2011Q2

REPORT INFORMATION
  Report Type: 
  Country: None (occurrence: None)
  Receive Date: 20110603
  Receipt Date: 20110603
  Transmission Date: 20111010
  Serious: Yes (Disabling)
  Sender: FDA-Public Use
  Company Number: None

PATIENT
  Age: 71 Year
  Sex: Female
  Weight: 55.7924 kg

DRUGS (2)
  1. GABAPENTIN [Suspect]
     Indication: HERPES ZOSTER
     Dosage: 300MG MOUTH
     Route: 048
     Dates: start: 20110103, end: 20110208
  2. GABAPENTIN [Suspect]
     Indication: PAIN
     Dosage: 300MG MOUTH
     Route: 048
     Dates: start: 20110103, end: 20110208

REACTIONS (7)
  - DYSPHEMIA [None]
  - PHOBIA OF DRIVING [None]
  - HEAD TITUBATION [None]
  - PREMATURE AGEING [None]
  - PAIN [None]
  - CONDITION AGGRAVATED [None]
  - BRADYPHRENIA [None]
